FAERS Safety Report 16999083 (Version 1)
Quarter: 2019Q4

REPORT INFORMATION
  Report Type: Spontaneous
  Country: US (occurrence: US)
  Receive Date: 20191105
  Receipt Date: 20191105
  Transmission Date: 20200122
  Serious: Yes (Hospitalization)
  Sender: FDA-Public Use
  Company Number: None

PATIENT
  Sex: Female
  Weight: 95.4 kg

DRUGS (1)
  1. TEMOZOLOMIDE CAPSULE [Suspect]
     Active Substance: TEMOZOLOMIDE

REACTIONS (3)
  - Decubitus ulcer [None]
  - Dehydration [None]
  - Decreased appetite [None]
